FAERS Safety Report 7880579-8 (Version None)
Quarter: 2011Q4

REPORT INFORMATION
  Report Type: 
  Country: None (occurrence: None)
  Receive Date: 20111101
  Receipt Date: 20101001
  Transmission Date: 20120403
  Serious: No
  Sender: FDA-Public Use
  Company Number: US-BAYER-201036387NA

PATIENT
  Age: 45 Year
  Sex: Male
  Weight: 75 kg

DRUGS (4)
  1. ULTRAVIST 300 [Suspect]
     Indication: COMPUTERISED TOMOGRAM ABDOMEN
  2. PRILOSEC [Concomitant]
  3. ULTRAVIST 300 [Suspect]
     Indication: DIVERTICULITIS
     Dosage: RIGHT ANTECUBITAL USING POWER INJECTOR @ A RATE OF 3.0 CC/SECOND AND WARMER
     Route: 042
     Dates: start: 20101001, end: 20101001
  4. VOLUMEN [Concomitant]
     Indication: COMPUTERISED TOMOGRAM ABDOMEN
     Route: 048
     Dates: start: 20101002, end: 20101002

REACTIONS (3)
  - NASAL CONGESTION [None]
  - SNEEZING [None]
  - URTICARIA [None]
